FAERS Safety Report 15955861 (Version 1)
Quarter: 2019Q1

REPORT INFORMATION
  Report Type: Spontaneous
  Country: US (occurrence: US)
  Receive Date: 20190212
  Receipt Date: 20190212
  Transmission Date: 20190417
  Serious: Yes (Disabling)
  Sender: FDA-Public Use
  Company Number: None

PATIENT
  Age: 59 Year
  Sex: Female
  Weight: 56.25 kg

DRUGS (1)
  1. VALSARTAN TABLETS USP 80MG, [Suspect]
     Active Substance: VALSARTAN
     Indication: HYPERTENSION
     Dosage: ??          QUANTITY:1 TABLET(S);?
     Route: 048
     Dates: start: 20170105, end: 20170815

REACTIONS (1)
  - Alopecia [None]

NARRATIVE: CASE EVENT DATE: 20170701
